FAERS Safety Report 5592603-6 (Version None)
Quarter: 2008Q1

REPORT INFORMATION
  Report Type: 
  Country: None (occurrence: None)
  Receive Date: 20080114
  Receipt Date: 20080108
  Transmission Date: 20080703
  Serious: Yes (Life-Threatening, Hospitalization, Other)
  Sender: FDA-Public Use
  Company Number: 07102290

PATIENT
  Age: 60 Year
  Sex: Male
  Weight: 125.1928 kg

DRUGS (4)
  1. FLUOROURACIL                 TOPICAL SOLUTION, 5% [Suspect]
     Indication: ACTINIC KERATOSIS
     Dosage: 1 APP, BID, TOPICAL
     Route: 061
     Dates: start: 20071002, end: 20071014
  2. CHLOROTHIAZIDE [Concomitant]
  3. CLONIDINE [Concomitant]
  4. ADVAIR DISKUS 100/50 [Concomitant]

REACTIONS (10)
  - ACUTE MYOCARDIAL INFARCTION [None]
  - BLOOD CHOLESTEROL INCREASED [None]
  - BLOOD CREATINE PHOSPHOKINASE INCREASED [None]
  - BLOOD TRIGLYCERIDES INCREASED [None]
  - CORONARY ARTERY DISEASE [None]
  - DRUG DOSE OMISSION [None]
  - GLYCOSYLATED HAEMOGLOBIN INCREASED [None]
  - HYPERLIPIDAEMIA [None]
  - LOW DENSITY LIPOPROTEIN INCREASED [None]
  - TYPE 2 DIABETES MELLITUS [None]
